FAERS Safety Report 10238598 (Version 1)
Quarter: 2014Q2

REPORT INFORMATION
  Report Type: Spontaneous
  Country: GB (occurrence: None)
  Receive Date: 20140612
  Receipt Date: 20140612
  Transmission Date: 20141212
  Serious: Yes (Other)
  Sender: FDA-Public Use
  Company Number: FK201402280

PATIENT
  Age: 66 Year
  Sex: Female
  Weight: 73.02 kg

DRUGS (6)
  1. FUROSEMIDE (MANUFACTURER UNKNOWN) (FUROSEMIDE) (FUROSEMIDE) [Suspect]
     Indication: POLLAKIURIA
     Route: 048
     Dates: start: 20140311, end: 20140318
  2. DESMOPRESSIN (DESMOPRESSIN) [Concomitant]
  3. DOXYCYCLINE (DOXYCYCLINE) [Concomitant]
  4. NASONEX (MOMETASONE FUROATE) [Concomitant]
  5. OVESTIN (ESTRIOL) [Concomitant]
  6. ZIMOVANE (ZOPICLONE) [Concomitant]

REACTIONS (4)
  - Off label use [None]
  - Balance disorder [None]
  - Tremor [None]
  - Blood sodium decreased [None]
